FAERS Safety Report 7963381-8 (Version None)
Quarter: 2011Q4

REPORT INFORMATION
  Report Type: 
  Country: None (occurrence: None)
  Receive Date: 20111205
  Receipt Date: 20111123
  Transmission Date: 20120403
  Serious: Yes (Hospitalization, Other)
  Sender: FDA-Public Use
  Company Number: ADR-2011-10589

PATIENT
  Age: 66 Year
  Sex: Male

DRUGS (3)
  1. BUPIVACAINE; DILAUDID [Concomitant]
  2. LIORESAL [Suspect]
     Indication: PAIN
     Dosage: 281.55 MCG, DAILY, INTR
     Route: 037
  3. LIORESAL [Suspect]
     Indication: POST LAMINECTOMY SYNDROME
     Dosage: 281.55 MCG, DAILY, INTR
     Route: 037

REACTIONS (3)
  - INFUSION SITE MASS [None]
  - PAIN [None]
  - RADICULAR PAIN [None]
